FAERS Safety Report 14223301 (Version 3)
Quarter: 2018Q3

REPORT INFORMATION
  Report Type: Report from Study
  Country: JP (occurrence: JP)
  Receive Date: 20171124
  Receipt Date: 20180726
  Transmission Date: 20181010
  Serious: Yes (Hospitalization)
  Sender: FDA-Public Use
  Company Number: JP-HORIZON-BUP-0091-2017

PATIENT
  Age: 3 Year
  Sex: Female

DRUGS (9)
  1. BENZOIC ACID [Concomitant]
     Active Substance: BENZOIC ACID
     Indication: ORNITHINE TRANSCARBAMOYLASE DEFICIENCY
     Route: 048
     Dates: start: 20171113
  2. SODIUM BENZOATE [Concomitant]
     Active Substance: SODIUM BENZOATE
     Indication: ORNITHINE TRANSCARBAMOYLASE DEFICIENCY
     Route: 048
     Dates: start: 20170609
  3. LANSOPRAZOLE. [Concomitant]
     Active Substance: LANSOPRAZOLE
     Indication: GASTROOESOPHAGEAL REFLUX DISEASE
     Route: 048
     Dates: start: 20170927
  4. CITRULLINE [Concomitant]
     Active Substance: CITRULLINE
     Indication: ORNITHINE TRANSCARBAMOYLASE DEFICIENCY
     Dosage: SEVERAL DOSES
     Route: 048
  5. AMIYU [Concomitant]
     Active Substance: AMINO ACIDS
     Indication: ORNITHINE TRANSCARBAMOYLASE DEFICIENCY
     Dosage: SEVERAL DOSES
     Route: 048
  6. BUPHENYL [Suspect]
     Active Substance: SODIUM PHENYLBUTYRATE
     Indication: ORNITHINE TRANSCARBAMOYLASE DEFICIENCY
     Dosage: 2.5 G DAILY ? 20?JUN?2017; 2.5 G DAILY FROM 28?AUG?2017 TO 20?NOV?2017; 3 G DAILY SINCE 21?NOV?2017
     Route: 048
     Dates: start: 20170609
  7. L?CARTIN FF [Concomitant]
     Active Substance: LEVOCARNITINE
     Indication: CARNITINE DECREASED
     Route: 048
     Dates: start: 20180323
  8. ARGI?U [Concomitant]
     Indication: ORNITHINE TRANSCARBAMOYLASE DEFICIENCY
     Dosage: SEVERAL DOSES
     Route: 048
  9. LACTULOSE. [Concomitant]
     Active Substance: LACTULOSE
     Indication: ORNITHINE TRANSCARBAMOYLASE DEFICIENCY
     Route: 048
     Dates: start: 20170610

REACTIONS (3)
  - Stomatitis [Recovered/Resolved]
  - Tibia fracture [Recovered/Resolved]
  - Hyperammonaemia [Recovering/Resolving]

NARRATIVE: CASE EVENT DATE: 20170821
